FAERS Safety Report 6208895-6 (Version None)
Quarter: 2009Q2

REPORT INFORMATION
  Report Type: 
  Country: None (occurrence: None)
  Receive Date: 20090529
  Receipt Date: 20090521
  Transmission Date: 20091009
  Serious: Yes (Other)
  Sender: FDA-Public Use
  Company Number: B0575754A

PATIENT
  Age: 40 Year
  Sex: Male

DRUGS (2)
  1. VALTREX [Suspect]
     Indication: HERPES ZOSTER
     Dosage: 1G THREE TIMES PER DAY
     Route: 048
     Dates: start: 20090514, end: 20090520
  2. ANTIBIOTICS [Concomitant]

REACTIONS (3)
  - NAUSEA [None]
  - PALPITATIONS [None]
  - VOMITING [None]
